FAERS Safety Report 15009561 (Version 1)
Quarter: 2018Q2

REPORT INFORMATION
  Report Type: Spontaneous
  Country: AU (occurrence: AU)
  Receive Date: 20180614
  Receipt Date: 20180614
  Transmission Date: 20180711
  Serious: Yes (Other)
  Sender: FDA-Public Use
  Company Number: AU-TEVA-2018-AU-903981

PATIENT
  Age: 46 Year
  Sex: Female

DRUGS (5)
  1. FLUDARABINE PHOSPHATE. [Suspect]
     Active Substance: FLUDARABINE PHOSPHATE
     Route: 065
  2. IDARUBICIN [Suspect]
     Active Substance: IDARUBICIN
     Route: 065
  3. G-CSF (TEVAGRASTIM/RATIOGRASTIM) [Suspect]
     Active Substance: FILGRASTIM
     Route: 065
  4. FILGRASTIM [Suspect]
     Active Substance: FILGRASTIM
     Route: 065
  5. CYTARABINE. [Suspect]
     Active Substance: CYTARABINE
     Route: 065

REACTIONS (1)
  - Refractory cancer [Unknown]
